FAERS Safety Report 23523605 (Version 1)
Quarter: 2024Q1

REPORT INFORMATION
  Report Type: Report from Study
  Country: US (occurrence: US)
  Receive Date: 20240214
  Receipt Date: 20240214
  Transmission Date: 20240410
  Serious: Yes (Death)
  Sender: FDA-Public Use
  Company Number: US-PFIZER INC-202200725154

PATIENT
  Age: 55 Year
  Sex: Male

DRUGS (7)
  1. MEKTOVI [Suspect]
     Active Substance: BINIMETINIB
     Indication: Malignant melanoma
     Dosage: 60 MG (TAKE 2 AM PILLS AND 2 PM PILLS)
     Dates: start: 20220504
  2. MEKTOVI [Suspect]
     Active Substance: BINIMETINIB
     Indication: Skin cancer
     Dosage: TAKE 3 TABLETS BY MOUTH TWICE DAILY
     Route: 048
     Dates: start: 20220504, end: 20240212
  3. MEKTOVI [Suspect]
     Active Substance: BINIMETINIB
     Indication: Neoplasm malignant
  4. BRAFTOVI [Suspect]
     Active Substance: ENCORAFENIB
     Indication: Malignant melanoma
     Dosage: 450 MG, 1X/DAY  (2BTL X 90) (TAKE 6 CAPSULES BY MOUTH ONCE DAILY)
     Route: 048
     Dates: start: 20220503
  5. BRAFTOVI [Suspect]
     Active Substance: ENCORAFENIB
     Indication: Skin cancer
     Dosage: 6 DF, 1X/DAY
     Route: 048
  6. BRAFTOVI [Suspect]
     Active Substance: ENCORAFENIB
     Indication: Neoplasm malignant
     Dosage: TAKE 6 CAPSULES BY MOUTH ONCE DAILY.
     Route: 048
     Dates: start: 20220503, end: 20240212
  7. CEPHALEXIN [Concomitant]
     Active Substance: CEPHALEXIN
     Dosage: 500 MG

REACTIONS (2)
  - Death [Fatal]
  - Cough [Not Recovered/Not Resolved]

NARRATIVE: CASE EVENT DATE: 20240212
